FAERS Safety Report 8440538-3 (Version None)
Quarter: 2012Q2

REPORT INFORMATION
  Report Type: 
  Country: None (occurrence: None)
  Receive Date: 20120323
  Receipt Date: 20110625
  Transmission Date: 20120825
  Serious: Yes (Other)
  Sender: FDA-Public Use
  Company Number: 163-21880-11063518

PATIENT
  Age: 86 Year
  Sex: Male
  Weight: 82 kg

DRUGS (3)
  1. REVLIMID [Suspect]
     Indication: MYELODYSPLASTIC SYNDROME
     Dosage: 10 MG, 1 IN 1 D, PO
     Route: 048
     Dates: start: 20090423, end: 20090710
  2. PLATELET (DIPYRIDAMOLE) (UNKNOWN) [Concomitant]
  3. BLOOD (BLOOD AND RELATED PRODUCTS) (UNKNOWN) [Concomitant]

REACTIONS (4)
  - ANAEMIA [None]
  - LARYNGITIS [None]
  - THROMBOCYTOPENIA [None]
  - ASTHENIA [None]
